FAERS Safety Report 21721978 (Version 1)
Quarter: 2022Q4

REPORT INFORMATION
  Report Type: Spontaneous
  Country: FR (occurrence: FR)
  Receive Date: 20221213
  Receipt Date: 20221213
  Transmission Date: 20230113
  Serious: Yes (Hospitalization)
  Sender: FDA-Public Use
  Company Number: None

PATIENT
  Age: 69 Year
  Sex: Female
  Weight: 53 kg

DRUGS (2)
  1. RAMIPRIL [Suspect]
     Active Substance: RAMIPRIL
     Indication: Product used for unknown indication
     Dosage: UNIT DOSE : 1 DOSAGE FORMS, THERAPY START AND END DATE : ASKU
     Route: 065
  2. COMIRNATY [Suspect]
     Active Substance: TOZINAMERAN
     Indication: COVID-19 immunisation
     Dosage: D1+D2, MRNA (MODIFIED NUCLEOSIDE) VACCINE AGAINST COVID-19, FORM STRENGTH : 30 UG, UNIT DOSE : 1 DOS
     Route: 065
     Dates: start: 20210406, end: 20210503

REACTIONS (1)
  - Colorectal cancer [Recovered/Resolved with Sequelae]

NARRATIVE: CASE EVENT DATE: 20210501
